FAERS Safety Report 25091149 (Version 2)
Quarter: 2025Q1

REPORT INFORMATION
  Report Type: Spontaneous
  Country: US (occurrence: US)
  Receive Date: 20250318
  Receipt Date: 20250326
  Transmission Date: 20250408
  Serious: No
  Sender: PFIZER
  Company Number: US-PFIZER INC-PV202500032361

PATIENT
  Age: 65 Year
  Sex: Female

DRUGS (4)
  1. SOMAVERT [Suspect]
     Active Substance: PEGVISOMANT
     Indication: Acromegaly
     Route: 058
  2. SOMAVERT [Suspect]
     Active Substance: PEGVISOMANT
     Indication: Hepatocellular carcinoma
     Dosage: 10 MG, DAILY
     Route: 058
     Dates: start: 20240301
  3. SOMAVERT [Suspect]
     Active Substance: PEGVISOMANT
     Indication: Hypothyroidism
  4. SOMAVERT [Suspect]
     Active Substance: PEGVISOMANT
     Indication: Pituitary tumour benign

REACTIONS (2)
  - Insulin-like growth factor increased [Unknown]
  - Glycosylated haemoglobin increased [Unknown]

NARRATIVE: CASE EVENT DATE: 20240507
